FAERS Safety Report 8390807-0 (Version None)
Quarter: 2012Q2

REPORT INFORMATION
  Report Type: 
  Country: None (occurrence: None)
  Receive Date: 20120529
  Receipt Date: 20120518
  Transmission Date: 20120825
  Serious: No
  Sender: FDA-Public Use
  Company Number: JP-ASTELLAS-2012JP002966

PATIENT
  Sex: Female
  Weight: 60.5 kg

DRUGS (3)
  1. FLEX [Concomitant]
     Indication: OSTEOARTHRITIS
     Dosage: UNK
     Route: 061
     Dates: start: 20090714
  2. VESICARE [Suspect]
     Indication: HYPERTONIC BLADDER
     Dosage: 2.5 MG, BID
     Route: 048
     Dates: start: 20120402
  3. SUVENYL [Concomitant]
     Indication: OSTEOARTHRITIS
     Dosage: 5 MG, Q2W
     Route: 061
     Dates: start: 20091102

REACTIONS (2)
  - CHEST PAIN [None]
  - LIP DRY [None]
